FAERS Safety Report 7919447-1 (Version None)
Quarter: 2011Q4

REPORT INFORMATION
  Report Type: 
  Country: None (occurrence: None)
  Receive Date: 20111117
  Receipt Date: 20111103
  Transmission Date: 20120403
  Serious: Yes (Other)
  Sender: FDA-Public Use
  Company Number: JP-MYLANLABS-2011S1023044

PATIENT
  Age: 1 Day
  Sex: Male

DRUGS (5)
  1. MIDAZOLAM [Suspect]
     Dosage: 0.2 MG/KG/HOUR
     Route: 041
  2. MIDAZOLAM [Suspect]
     Dosage: ADMINISTERED 1:15 AND 1:40 HOURS AFTER INITIAL MIDAZOLAM BOLUS
     Route: 040
  3. DIAZEPAM [Suspect]
     Indication: CONVULSION NEONATAL
     Route: 042
  4. MIDAZOLAM [Suspect]
     Route: 040
  5. MIDAZOLAM [Suspect]
     Indication: SEDATION
     Dosage: 0.2 MG/KG
     Route: 040

REACTIONS (1)
  - MOVEMENT DISORDER [None]
